FAERS Safety Report 15611222 (Version 1)
Quarter: 2018Q4

REPORT INFORMATION
  Report Type: Spontaneous
  Country: IT (occurrence: IT)
  Receive Date: 20181113
  Receipt Date: 20181113
  Transmission Date: 20190205
  Serious: Yes (Hospitalization)
  Sender: FDA-Public Use
  Company Number: IT-ACCORD-091880

PATIENT
  Age: 11 Year
  Sex: Female
  Weight: 71 kg

DRUGS (19)
  1. ENAPREN [Concomitant]
     Active Substance: ENALAPRIL MALEATE
  2. URBASON [Concomitant]
     Active Substance: METHYLPREDNISOLONE
     Route: 042
     Dates: start: 20171114
  3. ACICLOVIR [Concomitant]
     Active Substance: ACYCLOVIR
     Route: 048
     Dates: start: 20171110, end: 20171113
  4. METHOTREXATE. [Suspect]
     Active Substance: METHOTREXATE
     Indication: ALLOGENIC BONE MARROW TRANSPLANTATION THERAPY
     Dates: start: 20171119, end: 20171124
  5. ENDOXAN [Suspect]
     Active Substance: CYCLOPHOSPHAMIDE
     Indication: ALLOGENIC BONE MARROW TRANSPLANTATION THERAPY
     Route: 042
     Dates: start: 20171113, end: 20171114
  6. RANITIDINE. [Concomitant]
     Active Substance: RANITIDINE
     Route: 042
  7. ALOXI [Concomitant]
     Active Substance: PALONOSETRON HYDROCHLORIDE
     Dates: start: 20171111
  8. NYSTATIN/NYSTATIN/LIPOSOME [Concomitant]
     Route: 048
  9. ANTRA [Concomitant]
     Active Substance: OMEPRAZOLE
     Route: 042
  10. LASIX [Concomitant]
     Active Substance: FUROSEMIDE
     Route: 042
     Dates: start: 20171110
  11. CIPROFLOXACIN. [Concomitant]
     Active Substance: CIPROFLOXACIN
     Route: 048
     Dates: start: 20171110, end: 20171115
  12. SANDIMMUN [Concomitant]
     Active Substance: CYCLOSPORINE
     Dates: start: 20171113
  13. EMEND [Concomitant]
     Active Substance: APREPITANT
     Dates: start: 20171111, end: 20171113
  14. MESNA. [Concomitant]
     Active Substance: MESNA
     Route: 042
     Dates: start: 20171115
  15. TRIMETON [Concomitant]
     Active Substance: CHLORPHENIRAMINE MALEATE
     Route: 042
  16. FLUCONAZOLE. [Concomitant]
     Active Substance: FLUCONAZOLE
  17. THIOTEPA. [Suspect]
     Active Substance: THIOTEPA
     Indication: ALLOGENIC BONE MARROW TRANSPLANTATION THERAPY
     Route: 042
     Dates: start: 20171111, end: 20171112
  18. URSODEOXYCHOLIC ACID [Concomitant]
     Active Substance: URSODIOL
  19. TACHIPIRINA [Concomitant]
     Active Substance: ACETAMINOPHEN
     Route: 048

REACTIONS (4)
  - Off label use [Unknown]
  - Petechiae [Recovering/Resolving]
  - Phlebitis [Recovering/Resolving]
  - Haematoma [Recovering/Resolving]

NARRATIVE: CASE EVENT DATE: 20171130
